FAERS Safety Report 9313867 (Version 2)
Quarter: 2013Q2

REPORT INFORMATION
  Report Type: Spontaneous
  Country: US (occurrence: US)
  Receive Date: 20130529
  Receipt Date: 20130625
  Transmission Date: 20140414
  Serious: No
  Sender: FDA-Public Use
  Company Number: US-BIOGENIDEC-2013BI047256

PATIENT
  Age: 55 Year
  Sex: Female

DRUGS (3)
  1. TYSABRI [Suspect]
     Indication: MULTIPLE SCLEROSIS
     Route: 042
     Dates: start: 20080602, end: 20130502
  2. PHENOBARBITAL [Concomitant]
     Indication: CONVULSION
  3. MARIJUANA [Concomitant]
     Indication: OSTEOARTHRITIS

REACTIONS (8)
  - Trigeminal neuralgia [Not Recovered/Not Resolved]
  - Fibromyalgia [Unknown]
  - Paraesthesia [Unknown]
  - Depression [Recovered/Resolved]
  - Emotional distress [Unknown]
  - Nausea [Not Recovered/Not Resolved]
  - Vomiting [Not Recovered/Not Resolved]
  - Hypertension [Not Recovered/Not Resolved]
